FAERS Safety Report 10199625 (Version 6)
Quarter: 2014Q3

REPORT INFORMATION
  Report Type: Report from Study
  Country: CA (occurrence: CA)
  Receive Date: 20140527
  Receipt Date: 20140825
  Transmission Date: 20150326
  Serious: Yes (Other)
  Sender: FDA-Public Use
  Company Number: CA-SA-2014SA060111

PATIENT
  Age: 51 Year
  Sex: Female
  Weight: 118 kg

DRUGS (4)
  1. VITAMIN D [Concomitant]
     Active Substance: CHOLECALCIFEROL
     Indication: SUPPLEMENTATION THERAPY
     Route: 048
  2. AUBAGIO [Suspect]
     Active Substance: TERIFLUNOMIDE
     Indication: RELAPSING-REMITTING MULTIPLE SCLEROSIS
     Route: 048
  3. TEGRETOL [Concomitant]
     Active Substance: CARBAMAZEPINE
     Indication: TRIGEMINAL NEURALGIA
     Route: 048
     Dates: start: 2011
  4. AUBAGIO [Suspect]
     Active Substance: TERIFLUNOMIDE
     Indication: RELAPSING-REMITTING MULTIPLE SCLEROSIS
     Route: 048
     Dates: start: 20140121, end: 20140515

REACTIONS (12)
  - Pneumonia [Recovering/Resolving]
  - Cough [Recovered/Resolved]
  - Anosmia [Recovered/Resolved]
  - Dysphonia [Recovered/Resolved]
  - Productive cough [Unknown]
  - Joint dislocation [Recovered/Resolved]
  - Chest pain [Not Recovered/Not Resolved]
  - Pain in jaw [Recovered/Resolved]
  - Dysgeusia [Recovered/Resolved]
  - Upper respiratory tract infection [Recovered/Resolved]
  - Sputum discoloured [Not Recovered/Not Resolved]
  - Bronchitis [Not Recovered/Not Resolved]

NARRATIVE: CASE EVENT DATE: 20140428
